FAERS Safety Report 23830931 (Version 1)
Quarter: 2024Q2

REPORT INFORMATION
  Report Type: Spontaneous
  Country: DE (occurrence: DE)
  Receive Date: 20240508
  Receipt Date: 20240508
  Transmission Date: 20240715
  Serious: Yes (Disabling, Other)
  Sender: FDA-Public Use
  Company Number: DE-THERAMEX-2024000923

PATIENT
  Age: 73 Year
  Sex: Female

DRUGS (7)
  1. ALENDRONATE SODIUM [Suspect]
     Active Substance: ALENDRONATE SODIUM
     Indication: Osteoporosis
     Dosage: FROM THE COMPANIES DURA AND WINTROP ONCE A WEEK
     Dates: start: 201104, end: 201201
  2. ACTONEL [Suspect]
     Active Substance: RISEDRONATE SODIUM
     Indication: Osteoporosis
     Dosage: RECEIVED ACTONEL 35 MG FROM EMRA-MED ONCE A WEEK
     Dates: start: 201202, end: 201406
  3. CALCIUM [Concomitant]
     Active Substance: CALCIUM
     Indication: Hypersensitivity
     Dosage: UNK (DRINKING AMPOULES)
     Dates: start: 1964
  4. CHOLECALCIFEROL [Concomitant]
     Active Substance: CHOLECALCIFEROL
     Indication: Osteoporosis
     Dosage: EVERY 14 DAYS
     Dates: start: 201312
  5. CALCIUM CARBONATE [Concomitant]
     Active Substance: CALCIUM CARBONATE
     Indication: Osteoporosis
     Dosage: 1 DOSAGE FORM, ONCE A DAY (QD)
     Dates: start: 201104, end: 201406
  6. CORTISONE [Concomitant]
     Active Substance: CORTISONE
     Indication: Hypersensitivity
     Dosage: UNK
     Dates: start: 1964
  7. CALCIUM [Concomitant]
     Active Substance: CALCIUM
     Indication: Hypersensitivity
     Dosage: UNK
     Dates: start: 1964

REACTIONS (10)
  - Tooth loss [Not Recovered/Not Resolved]
  - Thoracic vertebral fracture [Unknown]
  - Osteonecrosis of jaw [Not Recovered/Not Resolved]
  - Therapy change [Unknown]
  - Gingival recession [Not Recovered/Not Resolved]
  - Drug ineffective [Unknown]
  - Gingivitis [Not Recovered/Not Resolved]
  - Alopecia [Unknown]
  - Dyspepsia [Unknown]
  - Dysphonia [Unknown]

NARRATIVE: CASE EVENT DATE: 20120201
